FAERS Safety Report 25434827 (Version 2)
Quarter: 2025Q2

REPORT INFORMATION
  Report Type: Report from Study
  Country: US (occurrence: US)
  Receive Date: 20250613
  Receipt Date: 20250620
  Transmission Date: 20250716
  Serious: No
  Sender: MALLINCKRODT
  Company Number: US-MALLINCKRODT-MNK202502536

PATIENT
  Age: 61 Year
  Sex: Female
  Weight: 273 kg

DRUGS (4)
  1. CORTICOTROPIN [Suspect]
     Active Substance: CORTICOTROPIN
     Indication: Multiple sclerosis
     Route: 058
     Dates: start: 20250419, end: 2025
  2. MODAFINIL [Concomitant]
     Active Substance: MODAFINIL
  3. OCREVUS [Concomitant]
     Active Substance: OCRELIZUMAB
  4. TRAZODONE [Concomitant]
     Active Substance: TRAZODONE HYDROCHLORIDE

REACTIONS (6)
  - Wheezing [Unknown]
  - Asthma [Unknown]
  - Joint swelling [Unknown]
  - Peripheral swelling [Unknown]
  - Injection site bruising [Unknown]
  - Injection site pruritus [Unknown]

NARRATIVE: CASE EVENT DATE: 20250101
